FAERS Safety Report 4684478-4 (Version None)
Quarter: 2005Q2

REPORT INFORMATION
  Report Type: 
  Country: None (occurrence: None)
  Receive Date: 20050606
  Receipt Date: 20050601
  Transmission Date: 20051028
  Serious: Yes (Death)
  Sender: FDA-Public Use
  Company Number: 05-06-0958

PATIENT
  Age: 69 Year
  Sex: Female

DRUGS (1)
  1. CLOZAPINE [Suspect]
     Indication: BIPOLAR I DISORDER
     Dosage: 200MG QD ORAL
     Route: 048
     Dates: start: 20010101, end: 20050501

REACTIONS (1)
  - RESPIRATORY ARREST [None]
